FAERS Safety Report 10243773 (Version 1)
Quarter: 2014Q2

REPORT INFORMATION
  Report Type: Spontaneous
  Country: US (occurrence: US)
  Receive Date: 20140618
  Receipt Date: 20140618
  Transmission Date: 20141212
  Serious: Yes (Other)
  Sender: FDA-Public Use
  Company Number: US-BAYER-2014-086475

PATIENT
  Age: 70 Year
  Sex: Male
  Weight: 113.38 kg

DRUGS (2)
  1. ALKA-SELTZER ORIGINAL [Suspect]
     Indication: DYSPEPSIA
     Dosage: 2 DF, UNK
     Route: 048
     Dates: start: 1962
  2. PRILOSEC [Concomitant]
     Dosage: 1 DF, UNK
     Route: 048

REACTIONS (3)
  - Drug dependence [None]
  - Extra dose administered [None]
  - Incorrect drug administration duration [Not Recovered/Not Resolved]
